FAERS Safety Report 5949082-6 (Version None)
Quarter: 2008Q4

REPORT INFORMATION
  Report Type: 
  Country: None (occurrence: None)
  Receive Date: 20081021
  Receipt Date: 20080422
  Transmission Date: 20090506
  Serious: Yes (Other)
  Sender: FDA-Public Use
  Company Number: US-WYE-H03788708

PATIENT
  Age: 54 Year
  Sex: Female
  Weight: 65.83 kg

DRUGS (2)
  1. PREMARIN [Suspect]
     Indication: HORMONE REPLACEMENT THERAPY
     Dosage: 0.625 MG
     Dates: start: 19970101, end: 20030101
  2. PREMARIN [Suspect]
     Indication: MENOPAUSE
     Dosage: 0.625 MG
     Dates: start: 19970101, end: 20030101

REACTIONS (1)
  - BREAST CANCER [None]
